FAERS Safety Report 9756231 (Version 1)
Quarter: 2013Q4

REPORT INFORMATION
  Report Type: Spontaneous
  Country: US (occurrence: US)
  Receive Date: 20131213
  Receipt Date: 20131213
  Transmission Date: 20140711
  Serious: No
  Sender: FDA-Public Use
  Company Number: US-GLAXOSMITHKLINE-A1035820A

PATIENT
  Age: 64 Year
  Sex: Female
  Weight: 47 kg

DRUGS (7)
  1. EQUATE NTS 21MG, CLEAR [Suspect]
     Indication: EX-TOBACCO USER
     Dates: start: 20130728, end: 20130729
  2. VITAMIN B [Concomitant]
  3. NEXIUM [Concomitant]
  4. XANAX [Concomitant]
  5. BABY ASPIRIN [Concomitant]
  6. ALLERGY MEDICATION [Concomitant]
  7. BLOOD PRESSURE MEDICATION [Concomitant]
     Indication: HYPERTENSION

REACTIONS (3)
  - Ill-defined disorder [Not Recovered/Not Resolved]
  - Application site pain [Not Recovered/Not Resolved]
  - Application site erythema [Not Recovered/Not Resolved]
